FAERS Safety Report 20627399 (Version 1)
Quarter: 2022Q1

REPORT INFORMATION
  Report Type: Spontaneous
  Country: US (occurrence: US)
  Receive Date: 20220323
  Receipt Date: 20220323
  Transmission Date: 20220424
  Serious: Yes (Hospitalization)
  Sender: FDA-Public Use
  Company Number: US-JNJFOC-20220335928

PATIENT
  Sex: Male
  Weight: 94.432 kg

DRUGS (2)
  1. XARELTO [Suspect]
     Active Substance: RIVAROXABAN
     Indication: Product used for unknown indication
     Dosage: UNK
     Route: 048
  2. ADEMPAS [Suspect]
     Active Substance: RIOCIGUAT
     Indication: Pulmonary arterial hypertension
     Dosage: 3 MG, TID
     Route: 048
     Dates: start: 20220228

REACTIONS (4)
  - Haematemesis [Unknown]
  - Pain in extremity [Unknown]
  - Chest pain [Unknown]
  - Product dose omission issue [Unknown]
